FAERS Safety Report 5707875-4 (Version None)
Quarter: 2008Q2

REPORT INFORMATION
  Report Type: 
  Country: None (occurrence: None)
  Receive Date: 20080417
  Receipt Date: 20080417
  Transmission Date: 20081010
  Serious: Yes (Other)
  Sender: FDA-Public Use
  Company Number: None

PATIENT
  Age: 75 Year
  Sex: Female
  Weight: 96.1626 kg

DRUGS (2)
  1. HEPARIN [Suspect]
     Indication: CARDIOPULMONARY BYPASS
     Dosage: 10,000 UNITS ONCE IV BOLUS
     Route: 040
     Dates: start: 20080409, end: 20080409
  2. HEPARIN [Suspect]
     Indication: CARDIOPULMONARY BYPASS
     Dosage: 8,000 UNITS ONCE IV BOLUS
     Route: 040
     Dates: start: 20080409, end: 20080409

REACTIONS (2)
  - HEART RATE DECREASED [None]
  - HYPERTENSION [None]
